FAERS Safety Report 8817467 (Version 1)
Quarter: 2012Q4

REPORT INFORMATION
  Report Type: 
  Country: GB (occurrence: GB)
  Receive Date: 20121001
  Receipt Date: 20121001
  Transmission Date: 20130627
  Serious: Yes (Other)
  Sender: FDA-Public Use
  Company Number: GB-ASTELLAS-2011EU002539

PATIENT
  Sex: Male

DRUGS (3)
  1. VESICARE [Suspect]
     Dosage: UNK
     Route: 065
  2. QUETIAPINE [Concomitant]
     Dosage: UNK
     Route: 065
  3. RISPERIDONE [Concomitant]
     Dosage: UNK
     Route: 065

REACTIONS (3)
  - Dementia [Unknown]
  - Agitation [Unknown]
  - Paranoia [Unknown]
